FAERS Safety Report 11075035 (Version 6)
Quarter: 2015Q3

REPORT INFORMATION
  Report Type: Report from Study
  Country: FR (occurrence: FR)
  Receive Date: 20150429
  Receipt Date: 20150929
  Transmission Date: 20151125
  Serious: Yes (Hospitalization, Other)
  Sender: FDA-Public Use
  Company Number: FR-JNJFOC-20150416255

PATIENT
  Age: 29 Year
  Sex: Male

DRUGS (3)
  1. RISPERDAL [Suspect]
     Active Substance: RISPERIDONE
     Indication: ANXIETY
     Dosage: 1 OR 2 MG
     Route: 048
  2. VALIUM [Concomitant]
     Active Substance: DIAZEPAM
     Indication: ANXIETY
     Route: 065
  3. RISPERDAL [Suspect]
     Active Substance: RISPERIDONE
     Indication: BIPOLAR I DISORDER
     Dosage: 1 OR 2 MG
     Route: 048

REACTIONS (9)
  - Mood altered [Unknown]
  - Hospitalisation [Unknown]
  - Drug ineffective [Unknown]
  - Mania [Unknown]
  - Delirium [Recovered/Resolved]
  - Psychotic disorder [Recovering/Resolving]
  - Sleep disorder [Unknown]
  - Therapy cessation [Unknown]
  - Depression [Recovering/Resolving]

NARRATIVE: CASE EVENT DATE: 2012
